FAERS Safety Report 10251222 (Version 1)
Quarter: 2014Q2

REPORT INFORMATION
  Report Type: Spontaneous
  Country: US (occurrence: US)
  Receive Date: 20140620
  Receipt Date: 20140620
  Transmission Date: 20141212
  Serious: No
  Sender: FDA-Public Use
  Company Number: US-TEVA-484665USA

PATIENT
  Sex: Female

DRUGS (1)
  1. COPAXONE [Suspect]
     Dates: start: 20080301

REACTIONS (4)
  - Menstrual disorder [Unknown]
  - Insomnia [Unknown]
  - Eczema [Unknown]
  - Fatigue [Unknown]
